FAERS Safety Report 15299508 (Version 1)
Quarter: 2018Q4

REPORT INFORMATION
  Report Type: Spontaneous
  Country: HR (occurrence: HR)
  Receive Date: 20180821
  Receipt Date: 20180821
  Transmission Date: 20190204
  Serious: Yes (Other)
  Sender: FDA-Public Use
  Company Number: HR-TEVA-2018-HR-945460

PATIENT
  Age: 18 Year
  Sex: Male

DRUGS (2)
  1. OXALEPT [Suspect]
     Active Substance: OXCARBAZEPINE
     Dosage: 1500 MILLIGRAM DAILY;
     Route: 048
     Dates: start: 20180517, end: 20180517
  2. EPRI [Suspect]
     Active Substance: ROSUVASTATIN CALCIUM
     Dosage: 300 MILLIGRAM DAILY;
     Route: 048
     Dates: start: 20180517, end: 20180517

REACTIONS (3)
  - Somnolence [Unknown]
  - Intentional overdose [Unknown]
  - Suicide attempt [Unknown]

NARRATIVE: CASE EVENT DATE: 20180517
